FAERS Safety Report 7860829-4 (Version None)
Quarter: 2011Q4

REPORT INFORMATION
  Report Type: 
  Country: None (occurrence: None)
  Receive Date: 20111027
  Receipt Date: 20111014
  Transmission Date: 20120403
  Serious: Yes (Other)
  Sender: FDA-Public Use
  Company Number: US-BAYER-2011-040574

PATIENT
  Age: 18 Year
  Sex: Female
  Weight: 68.027 kg

DRUGS (11)
  1. PRILOSEC [Concomitant]
     Dosage: 20 MG, UNK
     Route: 048
     Dates: start: 20091109
  2. YAZ [Suspect]
     Indication: ACNE
  3. METHOCARBAMOL [Concomitant]
     Dosage: 750 MG, UNK
     Route: 048
     Dates: start: 20090917
  4. NITROFURANTOIN [Concomitant]
     Dosage: 100 MG, BID
     Route: 048
     Dates: start: 20091105
  5. LEXAPRO [Concomitant]
     Dosage: 10 MG, UNK
     Route: 048
  6. METHYLPREDNISOLONE [Concomitant]
     Dosage: 4 MG, UNK
     Route: 048
     Dates: start: 20090917
  7. YAZ [Suspect]
     Indication: PREMENSTRUAL SYNDROME
  8. DUAC [Concomitant]
     Dosage: 5 %, UNK
     Route: 061
     Dates: start: 20090930
  9. YAZ [Suspect]
     Indication: CONTRACEPTION
     Dosage: UNK
     Dates: start: 20070101, end: 20090101
  10. DIFLUCAN [Concomitant]
     Dosage: 150 MG, UNK
     Route: 048
     Dates: start: 20090918
  11. CIPROFLOXACIN [Concomitant]
     Dosage: 500 MG, UNK
     Route: 048

REACTIONS (4)
  - GALLBLADDER DISORDER [None]
  - PAIN [None]
  - DEPRESSION [None]
  - CHOLECYSTITIS CHRONIC [None]
